FAERS Safety Report 8053795-2 (Version None)
Quarter: 2012Q1

REPORT INFORMATION
  Report Type: 
  Country: None (occurrence: None)
  Receive Date: 20120118
  Receipt Date: 20120109
  Transmission Date: 20120608
  Serious: Yes (Death, Hospitalization)
  Sender: FDA-Public Use
  Company Number: US-ACTELION-A-NJ2011-59021

PATIENT

DRUGS (5)
  1. ADCIRCA [Concomitant]
  2. LANOXIN [Concomitant]
  3. VENTAVIS [Suspect]
     Indication: PULMONARY ARTERIAL HYPERTENSION
     Dosage: UNK
     Route: 055
     Dates: start: 20100915, end: 20111227
  4. TRACLEER [Suspect]
     Indication: PULMONARY ARTERIAL HYPERTENSION
     Dosage: UNK
     Route: 048
     Dates: start: 20091103, end: 20111227
  5. COUMADIN [Concomitant]

REACTIONS (3)
  - DEATH [None]
  - SYNCOPE [None]
  - LOSS OF CONSCIOUSNESS [None]
